FAERS Safety Report 6375844-X (Version None)
Quarter: 2009Q3

REPORT INFORMATION
  Report Type: 
  Country: None (occurrence: None)
  Receive Date: 20090924
  Receipt Date: 20090921
  Transmission Date: 20100115
  Serious: Yes (Other)
  Sender: FDA-Public Use
  Company Number: FR-WYE-G04482009

PATIENT
  Sex: Male
  Weight: 5 kg

DRUGS (1)
  1. TAZOCILLINE [Suspect]
     Dosage: OVERDOSE AMOUNT WAS 2 G OF PIPERACILLIN IN ONE INFUSION
     Route: 042
     Dates: start: 20090907, end: 20090907

REACTIONS (2)
  - ACCIDENTAL OVERDOSE [None]
  - WRONG TECHNIQUE IN DRUG USAGE PROCESS [None]
